FAERS Safety Report 16194263 (Version 2)
Quarter: 2019Q2

REPORT INFORMATION
  Report Type: Spontaneous
  Country: AR (occurrence: ES)
  Receive Date: 20190414
  Receipt Date: 20190416
  Transmission Date: 20190711
  Serious: Yes (Death, Other)
  Sender: FDA-Public Use
  Company Number: AR-JNJFOC-20190414209

PATIENT

DRUGS (2)
  1. IBUPROFEN. [Suspect]
     Active Substance: IBUPROFEN
     Indication: PRODUCT USED FOR UNKNOWN INDICATION
     Route: 065
  2. IBUPROFEN. [Suspect]
     Active Substance: IBUPROFEN
     Route: 065

REACTIONS (5)
  - Mixed liver injury [Fatal]
  - Drug-induced liver injury [Fatal]
  - Hepatocellular injury [Fatal]
  - Cholestatic liver injury [Fatal]
  - Liver disorder [Fatal]
